FAERS Safety Report 11594568 (Version 4)
Quarter: 2015Q4

REPORT INFORMATION
  Report Type: Spontaneous
  Country: JP (occurrence: JP)
  Receive Date: 20151005
  Receipt Date: 20151207
  Transmission Date: 20160304
  Serious: Yes (Hospitalization)
  Sender: FDA-Public Use
  Company Number: PHJP2015JP017113

PATIENT
  Age: 80 Year
  Sex: Male

DRUGS (2)
  1. LEUPRORELIN [Concomitant]
     Active Substance: LEUPROLIDE ACETATE
     Indication: METASTASES TO BONE
     Route: 065
  2. ZOMETA [Suspect]
     Active Substance: ZOLEDRONIC ACID
     Indication: METASTASES TO BONE
     Dosage: 4 MG, UNK
     Route: 041
     Dates: start: 201204, end: 20140625

REACTIONS (8)
  - Renal glycosuria [Recovering/Resolving]
  - Aminoaciduria [Recovering/Resolving]
  - Cell marker increased [Recovering/Resolving]
  - Renal impairment [Recovering/Resolving]
  - Fanconi syndrome acquired [Recovering/Resolving]
  - Hypokalaemia [Recovering/Resolving]
  - Hypophosphataemia [Recovering/Resolving]
  - Hypouricaemia [Recovering/Resolving]

NARRATIVE: CASE EVENT DATE: 20140313
